FAERS Safety Report 11534174 (Version 1)
Quarter: 2015Q3

REPORT INFORMATION
  Report Type: Spontaneous
  Country: JP (occurrence: JP)
  Receive Date: 20150922
  Receipt Date: 20150922
  Transmission Date: 20151125
  Serious: Yes (Hospitalization)
  Sender: FDA-Public Use
  Company Number: JP-UCBSA-2015028303

PATIENT
  Age: 45 Year
  Sex: Female

DRUGS (1)
  1. NEUPRO [Suspect]
     Active Substance: ROTIGOTINE
     Indication: PARKINSON^S DISEASE
     Dosage: 4 MG, ONCE DAILY (QD)
     Route: 062

REACTIONS (2)
  - Application site dermatitis [Recovered/Resolved]
  - Hospitalisation [Unknown]
